FAERS Safety Report 18676286 (Version 1)
Quarter: 2020Q4

REPORT INFORMATION
  Report Type: Spontaneous
  Country: US (occurrence: US)
  Receive Date: 20201229
  Receipt Date: 20201229
  Transmission Date: 20210114
  Serious: No
  Sender: FDA-Public Use
  Company Number: US-TAKEDA-2020TUS060981

PATIENT
  Sex: Female
  Weight: 42 kg

DRUGS (1)
  1. VELCADE [Suspect]
     Active Substance: BORTEZOMIB
     Indication: PLASMA CELL MYELOMA
     Dosage: UNK
     Route: 058
     Dates: start: 20201001

REACTIONS (4)
  - Erythema [Recovered/Resolved]
  - Abdominal pain [Unknown]
  - Skin discolouration [Unknown]
  - Fatigue [Unknown]
